FAERS Safety Report 8251046-7 (Version None)
Quarter: 2012Q2

REPORT INFORMATION
  Report Type: 
  Country: None (occurrence: None)
  Receive Date: 20120402
  Receipt Date: 20120329
  Transmission Date: 20120825
  Serious: Yes (Other)
  Sender: FDA-Public Use
  Company Number: US-ROXANE LABORATORIES, INC.-2012-RO-00915RO

PATIENT
  Age: 52 Year
  Sex: Female

DRUGS (4)
  1. AZATHIOPRINE [Suspect]
     Indication: RHEUMATOID ARTHRITIS
  2. PREDNISONE TAB [Suspect]
     Indication: RHEUMATOID ARTHRITIS
  3. ALENDRONATE SODIUM [Suspect]
     Indication: OSTEOPOROSIS
  4. DICLOFENAC SODIUM [Suspect]

REACTIONS (2)
  - FEMUR FRACTURE [None]
  - OSTEOARTHRITIS [None]
